FAERS Safety Report 12467630 (Version 1)
Quarter: 2016Q2

REPORT INFORMATION
  Report Type: Spontaneous
  Country: US (occurrence: None)
  Receive Date: 20160614
  Receipt Date: 20160614
  Transmission Date: 20160815
  Serious: Yes (Hospitalization)
  Sender: FDA-Public Use
  Company Number: None

PATIENT
  Age: 45 Year
  Sex: Female
  Weight: 76 kg

DRUGS (5)
  1. TYSABRI [Concomitant]
     Active Substance: NATALIZUMAB
  2. GABAPENTIN. [Concomitant]
     Active Substance: GABAPENTIN
  3. BENICAR [Concomitant]
     Active Substance: OLMESARTAN MEDOXOMIL
  4. METFORMIN [Concomitant]
     Active Substance: METFORMIN HYDROCHLORIDE
  5. INVOKANA [Suspect]
     Active Substance: CANAGLIFLOZIN
     Route: 048
     Dates: end: 20151203

REACTIONS (2)
  - Urinary tract infection [None]
  - Diabetic ketoacidosis [None]

NARRATIVE: CASE EVENT DATE: 20151203
